FAERS Safety Report 6867532-8 (Version None)
Quarter: 2010Q3

REPORT INFORMATION
  Report Type: 
  Country: None (occurrence: None)
  Receive Date: 20100722
  Receipt Date: 20100708
  Transmission Date: 20110219
  Serious: Yes (Life-Threatening)
  Sender: FDA-Public Use
  Company Number: DE-BAUSCH-2010BL003732

PATIENT
  Age: 53 Year
  Sex: Female

DRUGS (3)
  1. ACYCLOVIR [Suspect]
     Indication: HERPES ZOSTER OTICUS
     Dates: start: 20100101
  2. ACYCLOVIR [Suspect]
     Indication: OFF LABEL USE
     Dates: start: 20100101
  3. DICLOFENAC [Suspect]
     Indication: PRODUCT USED FOR UNKNOWN INDICATION
     Route: 048
     Dates: start: 20100101

REACTIONS (1)
  - RENAL FAILURE [None]
